FAERS Safety Report 19087423 (Version 1)
Quarter: 2021Q2

REPORT INFORMATION
  Report Type: Report from Study
  Country: US (occurrence: US)
  Receive Date: 20210402
  Receipt Date: 20210402
  Transmission Date: 20210717
  Serious: Yes (Hospitalization, Other)
  Sender: FDA-Public Use
  Company Number: US-JNJFOC-20210344083

PATIENT
  Age: 58 Year
  Sex: Male
  Weight: 66.74 kg

DRUGS (1)
  1. MACITENTAN [Suspect]
     Active Substance: MACITENTAN
     Indication: PRODUCT USED FOR UNKNOWN INDICATION
     Route: 065
     Dates: start: 202102

REACTIONS (5)
  - Fluid retention [Unknown]
  - Weight decreased [Recovering/Resolving]
  - Anaemia [Not Recovered/Not Resolved]
  - Oxygen saturation decreased [Not Recovered/Not Resolved]
  - Dry mouth [Unknown]

NARRATIVE: CASE EVENT DATE: 20210309
